FAERS Safety Report 25331964 (Version 1)
Quarter: 2025Q2

REPORT INFORMATION
  Report Type: Report from Study
  Country: US (occurrence: US)
  Receive Date: 20250519
  Receipt Date: 20250519
  Transmission Date: 20250717
  Serious: Yes (Other)
  Sender: ALEXION PHARMACEUTICALS
  Company Number: US-ASTRAZENECA-202505USA013235US

PATIENT
  Age: 19 Year

DRUGS (1)
  1. STRENSIQ [Suspect]
     Active Substance: ASFOTASE ALFA
     Indication: Phosphorus metabolism disorder
     Dosage: 160 MILLIGRAM, TIW
     Route: 065

REACTIONS (3)
  - Schizophrenia [Unknown]
  - Injection site mass [Unknown]
  - Injection site rash [Unknown]
